FAERS Safety Report 4439588-3 (Version None)
Quarter: 2004Q3

REPORT INFORMATION
  Report Type: 
  Country: None (occurrence: None)
  Receive Date: 20040830
  Receipt Date: 20040816
  Transmission Date: 20050211
  Serious: Yes (Hospitalization, Other)
  Sender: FDA-Public Use
  Company Number: USA-2004-0016448

PATIENT
  Age: 38 Year
  Sex: Female

DRUGS (5)
  1. MORPHINE SULFATE [Suspect]
     Indication: CANCER PAIN
     Dosage: 20 MG, SEE TEXT
  2. METOCLOPRAMIDE [Concomitant]
  3. CITALOPRAM [Concomitant]
  4. DOLASETRON (DOLASETRON) [Concomitant]
  5. LEVOFLOXACIN [Concomitant]

REACTIONS (10)
  - ABDOMINAL DISTENSION [None]
  - ABDOMINAL NEOPLASM [None]
  - ABDOMINAL PAIN [None]
  - ASCITES [None]
  - DISEASE PROGRESSION [None]
  - FLATULENCE [None]
  - INFREQUENT BOWEL MOVEMENTS [None]
  - PELVIC MASS [None]
  - PLEURAL EFFUSION [None]
  - ULTRASOUND ABDOMEN ABNORMAL [None]
